FAERS Safety Report 7811578-X (Version None)
Quarter: 2011Q4

REPORT INFORMATION
  Report Type: 
  Country: None (occurrence: None)
  Receive Date: 20111013
  Receipt Date: 20111004
  Transmission Date: 20120403
  Serious: Yes (Other)
  Sender: FDA-Public Use
  Company Number: US-JNJFOC-20110903642

PATIENT
  Sex: Male
  Weight: 90.72 kg

DRUGS (4)
  1. TOPICORT CREAM [Concomitant]
     Route: 061
  2. STELARA [Suspect]
     Indication: PSORIASIS
     Route: 058
     Dates: start: 20110421
  3. MUPIROCIN [Concomitant]
     Route: 061
  4. CRESTOR [Concomitant]
     Route: 048

REACTIONS (2)
  - STAPHYLOCOCCAL INFECTION [None]
  - FURUNCLE [None]
